FAERS Safety Report 8415997-2 (Version None)
Quarter: 2012Q2

REPORT INFORMATION
  Report Type: 
  Country: None (occurrence: None)
  Receive Date: 20120606
  Receipt Date: 20120605
  Transmission Date: 20120825
  Serious: Yes (Other)
  Sender: FDA-Public Use
  Company Number: US-PFIZER INC-2012135164

PATIENT
  Sex: Female
  Weight: 46.7 kg

DRUGS (1)
  1. SERTRALINE HYDROCHLORIDE [Suspect]
     Indication: DEPRESSION
     Dosage: ONE AND A HALF TABLET, UNKNOWN DOSE AND FREQUENCY
     Route: 048
     Dates: start: 20120604

REACTIONS (3)
  - COELIAC DISEASE [None]
  - ABDOMINAL PAIN [None]
  - DIARRHOEA [None]
